FAERS Safety Report 18078791 (Version 1)
Quarter: 2020Q3

REPORT INFORMATION
  Report Type: Spontaneous
  Country: US (occurrence: US)
  Receive Date: 20200727
  Receipt Date: 20200727
  Transmission Date: 20201103
  Serious: Yes (Other)
  Sender: FDA-Public Use
  Company Number: None

PATIENT
  Age: 62 Year
  Sex: Female
  Weight: 96.75 kg

DRUGS (10)
  1. ATORVASTATIN 40 MG DAILY [Concomitant]
     Dates: start: 20191009
  2. ALLEGRA 180 MG DAILY [Concomitant]
     Dates: start: 20200416
  3. ALBUTEROL HFA 90 MCG [Concomitant]
     Dates: start: 20191119
  4. RYBELSUS [Suspect]
     Active Substance: SEMAGLUTIDE
     Indication: DIABETES MELLITUS
     Route: 048
     Dates: start: 20200623
  5. GLIMEPIRIDE 1 MG TWICE DAILY [Concomitant]
     Dates: start: 20200326
  6. SCOPOLAMIDE 1 MG PATCH EVERY 3 DAYS [Concomitant]
     Dates: start: 20191216
  7. METFORMIN 500 MG TWICE DAILY [Concomitant]
     Dates: start: 20200512
  8. CARVEDILOL 12.5 MG TWICE DAILY [Concomitant]
     Dates: start: 20200324
  9. DIAZEPAM 2 MG TWICE DAILY AS NEEDED [Concomitant]
     Dates: start: 20200324
  10. MECLIZINE 12.5 MG THREE TIMES DAILY AS NEEDED [Concomitant]
     Dates: start: 20200324

REACTIONS (3)
  - Nausea [None]
  - Diarrhoea [None]
  - Dizziness [None]

NARRATIVE: CASE EVENT DATE: 20200623
